FAERS Safety Report 19908633 (Version 1)
Quarter: 2021Q4

REPORT INFORMATION
  Report Type: Spontaneous
  Country: US (occurrence: US)
  Receive Date: 20211001
  Receipt Date: 20211001
  Transmission Date: 20220303
  Serious: No
  Sender: FDA-Public Use
  Company Number: US-AMARIN PHARMA, INC.-2020AMR000614

PATIENT
  Age: 67 Year
  Sex: Male
  Weight: 110.32 kg

DRUGS (20)
  1. VASCEPA [Suspect]
     Active Substance: ICOSAPENT ETHYL
     Indication: Blood triglycerides increased
     Dates: start: 202003, end: 2020
  2. VASCEPA [Suspect]
     Active Substance: ICOSAPENT ETHYL
     Dates: start: 2020, end: 2020
  3. VASCEPA [Suspect]
     Active Substance: ICOSAPENT ETHYL
     Dates: start: 2020
  4. HOST DEFENSE MUSHROOM [Concomitant]
     Indication: Prophylaxis
  5. LUTEIN [Concomitant]
     Active Substance: LUTEIN
     Indication: Eye disorder
  6. DICLOMINE [Concomitant]
     Indication: Pain
  7. DICLOMINE [Concomitant]
     Indication: Arthralgia
  8. DICLOMINE [Concomitant]
     Indication: Inflammation
  9. COENZYME Q10 [Concomitant]
     Active Substance: DIETARY SUPPLEMENT\UBIDECARENONE
     Indication: Nutritional supplementation
  10. ONE A DAY MEN^S 50 PLUS VITAMIN [Concomitant]
     Indication: Vitamin supplementation
  11. VITAMIN D3 [Concomitant]
     Active Substance: CHOLECALCIFEROL
     Indication: Product used for unknown indication
  12. SYNTHROID [Concomitant]
     Active Substance: LEVOTHYROXINE SODIUM
     Indication: Thyroidectomy
  13. EZETIMIBE [Concomitant]
     Active Substance: EZETIMIBE
     Indication: Blood cholesterol abnormal
  14. METOPROLOL [Concomitant]
     Active Substance: METOPROLOL
     Indication: Hypertension
  15. LOVASTATIN [Concomitant]
     Active Substance: LOVASTATIN
     Indication: Blood cholesterol abnormal
  16. NIFEDIPINE [Concomitant]
     Active Substance: NIFEDIPINE
     Indication: Hypertension
  17. SPIRONOLACTONE [Concomitant]
     Active Substance: SPIRONOLACTONE
     Indication: Hypertension
     Route: 048
  18. LOSARTAN [Concomitant]
     Active Substance: LOSARTAN
     Indication: Hypertension
  19. NIACIN [Concomitant]
     Active Substance: NIACIN
     Indication: Product used for unknown indication
  20. GABAPENTIN [Concomitant]
     Active Substance: GABAPENTIN
     Indication: Neuropathy peripheral

REACTIONS (4)
  - Prostatic specific antigen abnormal [Not Recovered/Not Resolved]
  - Blood glucose increased [Unknown]
  - Product administration error [Unknown]
  - Intentional underdose [Unknown]
